FAERS Safety Report 6441652-4 (Version None)
Quarter: 2009Q4

REPORT INFORMATION
  Report Type: 
  Country: None (occurrence: None)
  Receive Date: 20091116
  Receipt Date: 20091104
  Transmission Date: 20100525
  Serious: Yes (Life-Threatening, Hospitalization)
  Sender: FDA-Public Use
  Company Number: JP-AMGEN-US370430

PATIENT
  Sex: Female

DRUGS (9)
  1. ENBREL [Suspect]
     Indication: RHEUMATOID ARTHRITIS
     Route: 058
     Dates: start: 20090626
  2. METHOTREXATE [Suspect]
     Route: 048
     Dates: start: 20021114
  3. METHOTREXATE [Suspect]
     Route: 048
     Dates: start: 20021114
  4. ALFAROL [Concomitant]
     Route: 048
  5. FOLIAMIN [Concomitant]
     Route: 048
  6. ADALAT [Concomitant]
     Route: 048
  7. AMLODIPINE [Concomitant]
     Route: 048
  8. ACTONEL [Concomitant]
     Route: 048
  9. TENORMIN [Concomitant]
     Route: 048

REACTIONS (1)
  - PNEUMONIA [None]
